FAERS Safety Report 15002416 (Version 2)
Quarter: 2018Q2

REPORT INFORMATION
  Report Type: Spontaneous
  Country: IT (occurrence: IT)
  Receive Date: 20180612
  Receipt Date: 20180620
  Transmission Date: 20180711
  Serious: Yes (Hospitalization)
  Sender: FDA-Public Use
  Company Number: PHHY2018IT017746

PATIENT
  Age: 76 Year
  Sex: Male

DRUGS (2)
  1. ATORVASTATIN [Suspect]
     Active Substance: ATORVASTATIN
     Indication: PRODUCT USED FOR UNKNOWN INDICATION
     Route: 065
  2. INFLUENZA VIRUS VACCINE [Interacting]
     Active Substance: INFLUENZA VIRUS VACCINE
     Indication: PROPHYLAXIS
     Route: 065

REACTIONS (8)
  - Epidermal necrosis [Unknown]
  - Skin exfoliation [Unknown]
  - Renal failure [Unknown]
  - Drug interaction [Unknown]
  - Rash [Unknown]
  - Rhabdomyolysis [Unknown]
  - Stevens-Johnson syndrome [Unknown]
  - Dermatitis [Unknown]
